FAERS Safety Report 23705344 (Version 1)
Quarter: 2024Q2

REPORT INFORMATION
  Report Type: Spontaneous
  Country: US (occurrence: US)
  Receive Date: 20240404
  Receipt Date: 20240404
  Transmission Date: 20240715
  Serious: No
  Sender: FDA-Public Use
  Company Number: US-APOTEX-2024AP003735

PATIENT
  Sex: Female

DRUGS (1)
  1. FLUTICASONE PROPIONATE [Suspect]
     Active Substance: FLUTICASONE PROPIONATE
     Indication: Product used for unknown indication
     Dosage: UNK
     Route: 065
     Dates: start: 2024, end: 20240312

REACTIONS (5)
  - Condition aggravated [Unknown]
  - Acne [Unknown]
  - Scab [Unknown]
  - Product container seal issue [Unknown]
  - Epistaxis [Unknown]

NARRATIVE: CASE EVENT DATE: 20240101
